FAERS Safety Report 14067458 (Version 1)
Quarter: 2017Q4

REPORT INFORMATION
  Report Type: Spontaneous
  Country: US (occurrence: US)
  Receive Date: 20171010
  Receipt Date: 20171010
  Transmission Date: 20180321
  Serious: No
  Sender: FDA-Public Use
  Company Number: US-009507513-1709USA009864

PATIENT
  Sex: Female

DRUGS (1)
  1. NUVARING [Suspect]
     Active Substance: ETHINYL ESTRADIOL\ETONOGESTREL
     Dosage: 1 DF (.015/.12 MG), IN PLACE CONTINUOUSLY FOR THREE WEEKS, FOLLOWED BY A ONE-WEEK RING-FREE INTERVAL
     Route: 067

REACTIONS (2)
  - No adverse event [Unknown]
  - Product storage error [Unknown]
